FAERS Safety Report 18422829 (Version 1)
Quarter: 2020Q4

REPORT INFORMATION
  Report Type: Spontaneous
  Country: CA (occurrence: CA)
  Receive Date: 20201024
  Receipt Date: 20201024
  Transmission Date: 20210114
  Serious: Yes (Life-Threatening, Hospitalization, Other)
  Sender: FDA-Public Use
  Company Number: CA-MACLEODS PHARMACEUTICALS US LTD-MAC2020028690

PATIENT

DRUGS (5)
  1. ATENOLOL. [Concomitant]
     Active Substance: ATENOLOL
     Indication: HYPERTENSION
     Dosage: 50 MILLIGRAM, QD
     Route: 065
  2. LORAZEPAM. [Concomitant]
     Active Substance: LORAZEPAM
     Indication: ANXIETY
     Dosage: 2 MILLIGRAM, TID
     Route: 065
  3. METFORMIN [Suspect]
     Active Substance: METFORMIN HYDROCHLORIDE
     Indication: PRODUCT USED FOR UNKNOWN INDICATION
     Dosage: 90 GRAM, SINGLE, 180 TABLETS
     Route: 065
  4. PARACETAMOL [Suspect]
     Active Substance: ACETAMINOPHEN
     Indication: PRODUCT USED FOR UNKNOWN INDICATION
     Dosage: UNK
     Route: 065
  5. MIRTAZAPINE. [Concomitant]
     Active Substance: MIRTAZAPINE
     Indication: ANXIETY
     Dosage: 30 MILLIGRAM, QD
     Route: 065

REACTIONS (15)
  - Intentional overdose [Recovering/Resolving]
  - Blood potassium abnormal [Recovering/Resolving]
  - Anion gap increased [Recovering/Resolving]
  - Sepsis [Unknown]
  - Hypothermia [Unknown]
  - Depressed level of consciousness [Recovering/Resolving]
  - Suicide attempt [Unknown]
  - Hepatic enzyme increased [Unknown]
  - Lactic acidosis [Recovering/Resolving]
  - Condition aggravated [Recovering/Resolving]
  - Renal impairment [Recovered/Resolved]
  - Hypotension [Unknown]
  - Hypoglycaemia [Recovering/Resolving]
  - Osmolar gap increased [Unknown]
  - Drug level increased [Unknown]
